FAERS Safety Report 5363544-4 (Version None)
Quarter: 2007Q2

REPORT INFORMATION
  Report Type: 
  Country: None (occurrence: None)
  Receive Date: 20070618
  Receipt Date: 20070618
  Transmission Date: 20071010
  Serious: Yes (Other)
  Sender: FDA-Public Use
  Company Number: None

PATIENT
  Age: 76 Year
  Sex: Female
  Weight: 66.6788 kg

DRUGS (1)
  1. NADOLOL [Suspect]
     Indication: ARRHYTHMIA
     Dosage: 10 MG. 1 PER DAY

REACTIONS (7)
  - DECREASED INTEREST [None]
  - FATIGUE [None]
  - FEELING ABNORMAL [None]
  - HEART RATE IRREGULAR [None]
  - INCORRECT DOSE ADMINISTERED [None]
  - MEMORY IMPAIRMENT [None]
  - SENSATION OF HEAVINESS [None]
